FAERS Safety Report 25079957 (Version 1)
Quarter: 2025Q1

REPORT INFORMATION
  Report Type: Other
  Country: IT (occurrence: IT)
  Receive Date: 20250314
  Receipt Date: 20250314
  Transmission Date: 20250409
  Serious: Yes (Other)
  Sender: EMD SERONO INC
  Company Number: IT-Merck Healthcare KGaA-2025011619

PATIENT
  Age: 40 Year
  Sex: Female

DRUGS (3)
  1. CHORIOGONADOTROPIN ALFA [Suspect]
     Active Substance: CHORIOGONADOTROPIN ALFA
     Indication: Ovulation induction
  2. FOLLITROPIN ALFA [Suspect]
     Active Substance: FOLLITROPIN ALFA
     Indication: Controlled ovarian stimulation
     Dosage: FROM DAY 2 AFTER ONSET OF MENSES
  3. GANIRELIX [Suspect]
     Active Substance: GANIRELIX
     Indication: Prevention of premature ovulation
     Dosage: FROM DAY 7 AFTER ONSET OF MENSES

REACTIONS (1)
  - Graves^ disease [Recovering/Resolving]
